FAERS Safety Report 4746941-7 (Version None)
Quarter: 2005Q3

REPORT INFORMATION
  Report Type: 
  Country: None (occurrence: None)
  Receive Date: 20050815
  Receipt Date: 20050802
  Transmission Date: 20060218
  Serious: Yes (Hospitalization, Other)
  Sender: FDA-Public Use
  Company Number: USA0508104350

PATIENT
  Age: 76 Year
  Sex: Male
  Weight: 73 kg

DRUGS (10)
  1. HUMULIN N [Suspect]
     Dosage: 47 U DAY
     Dates: start: 20050512, end: 20050728
  2. HUMULIN L [Suspect]
     Indication: DIABETES MELLITUS INSULIN-DEPENDENT
     Dosage: 47 U DAY
     Dates: start: 19920501
  3. CLINDAMYCIN [Concomitant]
  4. PLAVIX [Concomitant]
  5. PLETAL [Concomitant]
  6. ASPIRIN [Concomitant]
  7. SOTALOL HCL [Concomitant]
  8. FUROSEMIDE [Concomitant]
  9. ZOCOR [Concomitant]
  10. OCCUVITE [Concomitant]

REACTIONS (10)
  - AMNESIA [None]
  - ATRIOVENTRICULAR BLOCK [None]
  - CATARACT [None]
  - CHEST PAIN [None]
  - DIABETIC COMA [None]
  - DRUG DISPENSING ERROR [None]
  - ROAD TRAFFIC ACCIDENT [None]
  - TOOTH ABSCESS [None]
  - TOOTH EXTRACTION [None]
  - VISUAL DISTURBANCE [None]
